FAERS Safety Report 14408754 (Version 3)
Quarter: 2022Q2

REPORT INFORMATION
  Report Type: Spontaneous
  Country: US (occurrence: US)
  Receive Date: 20180119
  Receipt Date: 20220626
  Transmission Date: 20220720
  Serious: No
  Sender: FDA-Public Use
  Company Number: US-JNJFOC-20170205850

PATIENT
  Age: 14 Year
  Sex: Male

DRUGS (9)
  1. RISPERDAL [Suspect]
     Active Substance: RISPERIDONE
     Indication: Attention deficit hyperactivity disorder
     Route: 048
     Dates: start: 20090220, end: 20090609
  2. RISPERDAL [Suspect]
     Active Substance: RISPERIDONE
     Indication: Learning disability
     Route: 048
     Dates: end: 201402
  3. RISPERDAL [Suspect]
     Active Substance: RISPERIDONE
     Indication: Foetal alcohol syndrome
  4. RISPERDAL [Suspect]
     Active Substance: RISPERIDONE
     Indication: Impulsive behaviour
  5. RISPERDAL [Suspect]
     Active Substance: RISPERIDONE
     Indication: Aggression
  6. RISPERIDONE [Suspect]
     Active Substance: RISPERIDONE
     Indication: Learning disability
     Route: 048
     Dates: start: 20090725, end: 20140227
  7. RISPERIDONE [Suspect]
     Active Substance: RISPERIDONE
     Indication: Foetal alcohol syndrome
  8. RISPERIDONE [Suspect]
     Active Substance: RISPERIDONE
     Indication: Attention deficit hyperactivity disorder
  9. RISPERIDONE [Suspect]
     Active Substance: RISPERIDONE
     Indication: Product used for unknown indication
     Route: 048

REACTIONS (4)
  - Emotional distress [Unknown]
  - Gynaecomastia [Recovering/Resolving]
  - Weight increased [Unknown]
  - Treatment noncompliance [Unknown]

NARRATIVE: CASE EVENT DATE: 20100401
